FAERS Safety Report 14254169 (Version 1)
Quarter: 2017Q4

REPORT INFORMATION
  Report Type: Spontaneous
  Country: CH (occurrence: CH)
  Receive Date: 20171206
  Receipt Date: 20171206
  Transmission Date: 20180321
  Serious: Yes (Hospitalization)
  Sender: FDA-Public Use
  Company Number: CH-ROCHE-2034023

PATIENT
  Sex: Male

DRUGS (12)
  1. TEMESTA EXPIDET [Suspect]
     Active Substance: LORAZEPAM
     Indication: AGITATION
     Route: 048
  2. DAFALGAN [Concomitant]
     Active Substance: ACETAMINOPHEN
     Route: 048
  3. CITALOPRAM [Suspect]
     Active Substance: CITALOPRAM HYDROBROMIDE
     Indication: PRODUCT USED FOR UNKNOWN INDICATION
     Route: 048
     Dates: start: 20170703, end: 20170816
  4. QUETIAPIN [Suspect]
     Active Substance: QUETIAPINE
     Indication: CONDUCT DISORDER
     Route: 048
     Dates: start: 20170515, end: 20170828
  5. PURSANA [Concomitant]
     Active Substance: FIG FRUIT OIL\SORBITOL
     Route: 048
  6. RIVOTRIL [Suspect]
     Active Substance: CLONAZEPAM
     Indication: AGITATION
     Route: 048
     Dates: start: 20170817, end: 20171001
  7. MABTHERA [Suspect]
     Active Substance: RITUXIMAB
     Indication: MULTIPLE SCLEROSIS
     Route: 042
     Dates: start: 20170521
  8. ORFIRIL LONG [Suspect]
     Active Substance: VALPROIC ACID
     Indication: IMPULSIVE BEHAVIOUR
     Route: 048
     Dates: start: 20170405, end: 20170704
  9. ABILIFY [Suspect]
     Active Substance: ARIPIPRAZOLE
     Indication: PRODUCT USED FOR UNKNOWN INDICATION
     Route: 048
     Dates: start: 20170908
  10. LIORESAL [Concomitant]
     Active Substance: BACLOFEN
     Route: 065
     Dates: start: 20170321
  11. VI-DE 3 [Concomitant]
     Active Substance: CHOLECALCIFEROL
     Route: 048
     Dates: start: 20170905
  12. IRFEN [Concomitant]
     Active Substance: IBUPROFEN
     Route: 065
     Dates: start: 20171011

REACTIONS (1)
  - Condition aggravated [Not Recovered/Not Resolved]
